FAERS Safety Report 24004273 (Version 1)
Quarter: 2024Q2

REPORT INFORMATION
  Report Type: Spontaneous
  Country: US (occurrence: US)
  Receive Date: 20240624
  Receipt Date: 20240624
  Transmission Date: 20240716
  Serious: Yes (Hospitalization, Other)
  Sender: FDA-Public Use
  Company Number: US-MLMSERVICE-20240423-PI035922-00108-1

PATIENT
  Age: 20 Year
  Sex: Female

DRUGS (28)
  1. CHLORPROMAZINE HYDROCHLORIDE [Interacting]
     Active Substance: CHLORPROMAZINE HYDROCHLORIDE
     Indication: Post-traumatic stress disorder
     Dosage: 25 MILLIGRAM, 3 TIMES A DAY
     Route: 065
  2. CHLORPROMAZINE HYDROCHLORIDE [Interacting]
     Active Substance: CHLORPROMAZINE HYDROCHLORIDE
     Indication: Borderline personality disorder
  3. CHLORPROMAZINE HYDROCHLORIDE [Interacting]
     Active Substance: CHLORPROMAZINE HYDROCHLORIDE
     Indication: Major depression
  4. CHLORPROMAZINE HYDROCHLORIDE [Interacting]
     Active Substance: CHLORPROMAZINE HYDROCHLORIDE
     Indication: Anxiety disorder
  5. BUPROPION [Interacting]
     Active Substance: BUPROPION
     Indication: Post-traumatic stress disorder
     Dosage: UNK
     Route: 065
  6. BUPROPION [Interacting]
     Active Substance: BUPROPION
     Indication: Anxiety disorder
  7. BUPROPION [Interacting]
     Active Substance: BUPROPION
     Indication: Borderline personality disorder
  8. BUPROPION [Interacting]
     Active Substance: BUPROPION
     Indication: Major depression
  9. CLOZAPINE [Interacting]
     Active Substance: CLOZAPINE
     Indication: Major depression
     Dosage: 100 MILLIGRAM, ONCE A DAY
     Route: 065
  10. CLOZAPINE [Interacting]
     Active Substance: CLOZAPINE
     Indication: Borderline personality disorder
  11. CLOZAPINE [Interacting]
     Active Substance: CLOZAPINE
     Indication: Major depression
  12. CLOZAPINE [Interacting]
     Active Substance: CLOZAPINE
     Indication: Anxiety disorder
  13. LAMOTRIGINE [Interacting]
     Active Substance: LAMOTRIGINE
     Indication: Major depression
     Dosage: UNK
     Route: 065
  14. LAMOTRIGINE [Interacting]
     Active Substance: LAMOTRIGINE
     Indication: Borderline personality disorder
  15. LAMOTRIGINE [Interacting]
     Active Substance: LAMOTRIGINE
     Indication: Post-traumatic stress disorder
  16. LAMOTRIGINE [Interacting]
     Active Substance: LAMOTRIGINE
     Indication: Anxiety disorder
  17. TOPIRAMATE [Interacting]
     Active Substance: TOPIRAMATE
     Indication: Major depression
     Dosage: UNK
     Route: 065
  18. TOPIRAMATE [Interacting]
     Active Substance: TOPIRAMATE
     Indication: Borderline personality disorder
  19. TOPIRAMATE [Interacting]
     Active Substance: TOPIRAMATE
     Indication: Post-traumatic stress disorder
  20. TOPIRAMATE [Interacting]
     Active Substance: TOPIRAMATE
     Indication: Anxiety disorder
  21. CITALOPRAM [Concomitant]
     Active Substance: CITALOPRAM\CITALOPRAM HYDROBROMIDE
     Indication: Major depression
     Dosage: UNK
     Route: 065
  22. CITALOPRAM [Concomitant]
     Active Substance: CITALOPRAM\CITALOPRAM HYDROBROMIDE
     Indication: Anxiety disorder
  23. CITALOPRAM [Concomitant]
     Active Substance: CITALOPRAM\CITALOPRAM HYDROBROMIDE
     Indication: Borderline personality disorder
  24. CITALOPRAM [Concomitant]
     Active Substance: CITALOPRAM\CITALOPRAM HYDROBROMIDE
     Indication: Post-traumatic stress disorder
  25. LITHIUM [Concomitant]
     Active Substance: LITHIUM
     Indication: Borderline personality disorder
     Dosage: UNK
     Route: 065
  26. LITHIUM [Concomitant]
     Active Substance: LITHIUM
     Indication: Post-traumatic stress disorder
  27. LITHIUM [Concomitant]
     Active Substance: LITHIUM
     Indication: Major depression
  28. LITHIUM [Concomitant]
     Active Substance: LITHIUM
     Indication: Anxiety disorder

REACTIONS (5)
  - Agranulocytosis [Recovered/Resolved]
  - Neutropenic sepsis [Recovered/Resolved]
  - Thrombocytosis [Recovered/Resolved]
  - Anaemia [Recovered/Resolved]
  - Drug interaction [Recovered/Resolved]
